FAERS Safety Report 7174570-7 (Version None)
Quarter: 2010Q4

REPORT INFORMATION
  Report Type: 
  Country: None (occurrence: None)
  Receive Date: 20101219
  Receipt Date: 20100401
  Transmission Date: 20110411
  Serious: No
  Sender: FDA-Public Use
  Company Number: US-AMGEN-KDL403363

PATIENT

DRUGS (5)
  1. ENBREL [Suspect]
     Indication: PRODUCT USED FOR UNKNOWN INDICATION
     Dosage: 25 MG, 2 TIMES/WK
     Route: 058
  2. DICYCLOVERINE HYDROCHLORIDE [Concomitant]
     Dosage: 10 MG, UNK
  3. CLONIDINE [Concomitant]
     Dosage: .1 MG, QD
  4. TRAMADOL HYDROCHLORIDE [Concomitant]
     Dosage: 100 MG, UNK
  5. ACETAMINOPHEN [Concomitant]
     Dosage: 325 MG, UNK

REACTIONS (11)
  - ALOPECIA [None]
  - DIZZINESS [None]
  - INFLUENZA LIKE ILLNESS [None]
  - INJECTION SITE ERYTHEMA [None]
  - INJECTION SITE HYPERSENSITIVITY [None]
  - NASAL CONGESTION [None]
  - NASOPHARYNGITIS [None]
  - NAUSEA [None]
  - OROPHARYNGEAL PAIN [None]
  - RASH [None]
  - UPPER RESPIRATORY TRACT CONGESTION [None]
